FAERS Safety Report 20340157 (Version 1)
Quarter: 2022Q1

REPORT INFORMATION
  Report Type: Spontaneous
  Country: US (occurrence: US)
  Receive Date: 20220117
  Receipt Date: 20220117
  Transmission Date: 20220423
  Serious: Yes (Death, Hospitalization, Other)
  Sender: FDA-Public Use
  Company Number: US-APOTEX-2022AP000350

PATIENT
  Age: 17 Month
  Sex: Male

DRUGS (1)
  1. BUPROPION [Suspect]
     Active Substance: BUPROPION
     Indication: Product used for unknown indication
     Dosage: UNK
     Route: 048

REACTIONS (4)
  - Accidental exposure to product [Fatal]
  - Seizure [Fatal]
  - Ventricular tachycardia [Fatal]
  - Bradycardia [Fatal]

NARRATIVE: CASE EVENT DATE: 20200101
